FAERS Safety Report 4510074-5 (Version None)
Quarter: 2004Q4

REPORT INFORMATION
  Report Type: 
  Country: None (occurrence: None)
  Receive Date: 20041124
  Receipt Date: 20041118
  Transmission Date: 20050328
  Serious: Yes (Other)
  Sender: FDA-Public Use
  Company Number: PHEH2004US12533

PATIENT
  Age: 77 Year
  Sex: Male

DRUGS (1)
  1. DIOVAN [Suspect]
     Dosage: 160 MG, QD
     Route: 048
     Dates: start: 20040901, end: 20041101

REACTIONS (5)
  - EOSINOPHIL COUNT INCREASED [None]
  - LEUKOCYTOCLASTIC VASCULITIS [None]
  - NEUROPATHY PERIPHERAL [None]
  - OEDEMA PERIPHERAL [None]
  - VASCULITIS [None]
